FAERS Safety Report 25167627 (Version 2)
Quarter: 2025Q2

REPORT INFORMATION
  Report Type: Spontaneous
  Country: US (occurrence: US)
  Receive Date: 20250407
  Receipt Date: 20250604
  Transmission Date: 20250717
  Serious: No
  Sender: NOVEN
  Company Number: US-NOVEN PHARMACEUTICALS, INC.-2025-NOV-US000483

PATIENT
  Age: 25 Year
  Sex: Female

DRUGS (1)
  1. XELSTRYM [Suspect]
     Active Substance: DEXTROAMPHETAMINE
     Indication: Attention deficit hyperactivity disorder
     Route: 062
     Dates: start: 202502

REACTIONS (4)
  - Feeling abnormal [Not Recovered/Not Resolved]
  - Dermal absorption increased [Not Recovered/Not Resolved]
  - Somnolence [Not Recovered/Not Resolved]
  - Mood altered [Not Recovered/Not Resolved]

NARRATIVE: CASE EVENT DATE: 20250201
